FAERS Safety Report 5598075-X (Version None)
Quarter: 2008Q1

REPORT INFORMATION
  Report Type: 
  Country: None (occurrence: None)
  Receive Date: 20080122
  Receipt Date: 20080110
  Transmission Date: 20080703
  Serious: Yes (Other)
  Sender: FDA-Public Use
  Company Number: US-ELI_LILLY_AND_COMPANY-US200801002293

PATIENT
  Sex: Female

DRUGS (2)
  1. FORTEO [Suspect]
     Indication: OSTEOPOROSIS
     Dates: start: 20060801
  2. FORTEO [Suspect]
     Dates: end: 20080101

REACTIONS (4)
  - CHOLECYSTECTOMY [None]
  - ILL-DEFINED DISORDER [None]
  - PAIN [None]
  - VOMITING [None]
